FAERS Safety Report 16718657 (Version 4)
Quarter: 2021Q2

REPORT INFORMATION
  Report Type: Spontaneous
  Country: FR (occurrence: FR)
  Receive Date: 20190820
  Receipt Date: 20210421
  Transmission Date: 20210716
  Serious: Yes (Hospitalization)
  Sender: FDA-Public Use
  Company Number: FR-009507513-1908FRA007100

PATIENT
  Age: 46 Year
  Sex: Male
  Weight: 109 kg

DRUGS (33)
  1. MORPHINE [Concomitant]
     Active Substance: MORPHINE
     Dosage: UNK
     Route: 042
     Dates: start: 20190513, end: 20190625
  2. GENTAMICINE [Concomitant]
     Active Substance: GENTAMICIN
     Dosage: UNK
     Route: 042
     Dates: start: 20190524, end: 20190529
  3. TRIMEBUTINE [Concomitant]
     Active Substance: TRIMEBUTINE
     Dosage: UNK
     Route: 042
     Dates: start: 20190527, end: 20190602
  4. AUGMENTIN [Concomitant]
     Active Substance: AMOXICILLIN\CLAVULANATE POTASSIUM
     Indication: OSTEOMYELITIS
     Dosage: UNK
     Route: 048
     Dates: start: 20190608, end: 20190616
  5. ACETAMINOPHEN. [Concomitant]
     Active Substance: ACETAMINOPHEN
     Dosage: UNK
     Route: 048
     Dates: start: 20190513, end: 20190701
  6. ACTISKENAN [Concomitant]
     Active Substance: MORPHINE SULFATE
     Dosage: UNK
     Route: 048
     Dates: start: 20190528
  7. VENOFER [Concomitant]
     Active Substance: IRON SUCROSE
     Dosage: 20 MILLIGRAM PER MILLILITRE
     Route: 042
     Dates: start: 20190513
  8. IMOVANE [Concomitant]
     Active Substance: ZOPICLONE
     Dosage: 375 MILLIGRAM
     Route: 048
     Dates: start: 20190530, end: 20190604
  9. ONDANSETRON [Concomitant]
     Active Substance: ONDANSETRON
     Dosage: UNK
     Route: 048
     Dates: start: 20190524, end: 20190524
  10. LOVENOX [Concomitant]
     Active Substance: ENOXAPARIN SODIUM
     Dosage: UNK
     Route: 058
     Dates: start: 20190513
  11. DROPERIDOL. [Concomitant]
     Active Substance: DROPERIDOL
     Dosage: UNK
     Route: 042
     Dates: start: 20190524, end: 20190525
  12. NALOXEGOL OXALATE. [Concomitant]
     Active Substance: NALOXEGOL OXALATE
     Dosage: UNK
     Route: 048
     Dates: start: 20190513
  13. HYDROXYZINE HYDROCHLORIDE. [Concomitant]
     Active Substance: HYDROXYZINE HYDROCHLORIDE
     Dosage: UNK
     Route: 048
     Dates: start: 20190513, end: 20190530
  14. NEFOPAM [Concomitant]
     Active Substance: NEFOPAM
     Dosage: UNK
     Route: 042
     Dates: start: 20190513, end: 20190524
  15. FOLIC ACID. [Concomitant]
     Active Substance: FOLIC ACID
     Dosage: UNK
     Route: 048
     Dates: start: 20190513
  16. VANCOMYCIN [Concomitant]
     Active Substance: VANCOMYCIN
     Dosage: UNK
     Route: 042
     Dates: start: 20190524, end: 20190617
  17. TRANSIPEG [Concomitant]
     Dosage: 5.9 GRAM
     Route: 048
     Dates: start: 20190513, end: 20190521
  18. TAZOBACTAM [Suspect]
     Active Substance: TAZOBACTAM
     Indication: OSTEOMYELITIS
     Dosage: SEE COMMENT
     Route: 042
     Dates: start: 20190524, end: 20190701
  19. PIPERACILLIN. [Suspect]
     Active Substance: PIPERACILLIN SODIUM
     Indication: OSTEOMYELITIS
     Dosage: SEE COMMENT
     Route: 042
     Dates: start: 20190524, end: 20190701
  20. SERESTA [Concomitant]
     Active Substance: OXAZEPAM
     Dosage: 10 MILLIGRAM
     Route: 048
     Dates: start: 20190531
  21. CUBICIN [Suspect]
     Active Substance: DAPTOMYCIN
     Indication: OSTEOMYELITIS
     Dosage: 850 MILLIGRAM
     Route: 042
     Dates: start: 20190625, end: 20190701
  22. LAROXYL [Concomitant]
     Active Substance: AMITRIPTYLINE HYDROCHLORIDE
     Dosage: SOLUTION
     Route: 048
     Dates: start: 20190601
  23. PREGABALIN. [Concomitant]
     Active Substance: PREGABALIN
     Dosage: UNK
     Route: 048
     Dates: start: 20190513
  24. BROMAZEPAM [Concomitant]
     Active Substance: BROMAZEPAM
     Dosage: UNK
     Route: 048
     Dates: start: 20190530, end: 20190531
  25. KETAMINE [Concomitant]
     Active Substance: KETAMINE
     Dosage: UNK
     Route: 042
     Dates: start: 20190625, end: 20190630
  26. ALPRAZOLAM. [Concomitant]
     Active Substance: ALPRAZOLAM
     Dosage: UNK
     Route: 048
     Dates: start: 20190513, end: 20190530
  27. AUGMENTIN [Concomitant]
     Active Substance: AMOXICILLIN\CLAVULANATE POTASSIUM
     Indication: OSTEOMYELITIS
     Dosage: UNK
     Route: 042
     Dates: start: 20190606, end: 20190608
  28. SKENAN [Concomitant]
     Active Substance: MORPHINE SULFATE
     Dosage: PROLONGED RELEASE HARD CAPSULE
     Route: 048
     Dates: start: 20190524
  29. TERCIAN [Concomitant]
     Active Substance: CYAMEMAZINE
     Dosage: 25 MILLIGRAM
     Route: 048
     Dates: start: 20190604, end: 20190701
  30. ESOMEPRAZOLE. [Concomitant]
     Active Substance: ESOMEPRAZOLE MAGNESIUM
     Dosage: UNK
     Route: 048
  31. SETOFILM [Concomitant]
     Active Substance: ONDANSETRON
     Dosage: 4 MILLIGRAM
     Route: 048
     Dates: start: 20190525
  32. MOVICOL [Concomitant]
     Active Substance: POLYETHYLENE GLYCOL 3350\POTASSIUM CHLORIDE\SODIUM BICARBONATE\SODIUM CHLORIDE
     Dosage: UNK
     Route: 048
     Dates: start: 20190521
  33. OFLOXACIN. [Concomitant]
     Active Substance: OFLOXACIN
     Dosage: UNK
     Route: 048
     Dates: start: 20190616

REACTIONS (2)
  - Gamma-glutamyltransferase increased [Recovering/Resolving]
  - Hepatic enzyme increased [Recovering/Resolving]

NARRATIVE: CASE EVENT DATE: 20190627
